FAERS Safety Report 4952748-8 (Version None)
Quarter: 2006Q1

REPORT INFORMATION
  Report Type: 
  Country: None (occurrence: None)
  Receive Date: 20060324
  Receipt Date: 20060224
  Transmission Date: 20060701
  Serious: Yes (Other)
  Sender: FDA-Public Use
  Company Number: PHBS2006JP03219

PATIENT
  Age: 21 Year

DRUGS (2)
  1. VOLTAREN [Suspect]
     Indication: INJURY
     Route: 048
  2. OTC MEDICINES UNSPECIFIED [Suspect]
     Indication: NASOPHARYNGITIS

REACTIONS (3)
  - AMNESIA [None]
  - DEPRESSED LEVEL OF CONSCIOUSNESS [None]
  - NASOPHARYNGITIS [None]
